FAERS Safety Report 5515227-5 (Version None)
Quarter: 2007Q4

REPORT INFORMATION
  Report Type: 
  Country: None (occurrence: None)
  Receive Date: 20071109
  Receipt Date: 20071029
  Transmission Date: 20080405
  Serious: Yes (Other)
  Sender: FDA-Public Use
  Company Number: CHPA2007US11720

PATIENT
  Sex: Female

DRUGS (1)
  1. BENEFIBER PLUS CALCIUM WITH WHEAT DEXTRIN(NCH)(CALCIUM CARBONATE, WHEA [Suspect]
     Indication: NUTRITIONAL SUPPORT
     Dosage: ORAL
     Route: 048

REACTIONS (2)
  - FAECES DISCOLOURED [None]
  - GASTROINTESTINAL DISORDER [None]
